FAERS Safety Report 17128187 (Version 1)
Quarter: 2019Q4

REPORT INFORMATION
  Report Type: Spontaneous
  Country: US (occurrence: US)
  Receive Date: 20191209
  Receipt Date: 20191209
  Transmission Date: 20200122
  Serious: No
  Sender: FDA-Public Use
  Company Number: US-UCBSA-2017002360

PATIENT
  Sex: Male
  Weight: 32 kg

DRUGS (8)
  1. ZARONTIN [Concomitant]
     Active Substance: ETHOSUXIMIDE
     Indication: SEIZURE
     Dosage: 10 ML, 2X/DAY (BID)
     Dates: start: 2009, end: 201608
  2. DIAZEPAM. [Concomitant]
     Active Substance: DIAZEPAM
     Indication: SEIZURE
     Dosage: 10 ML, ONCE DAILY (QD)
  3. TRILEPTAL [Concomitant]
     Active Substance: OXCARBAZEPINE
     Indication: SEIZURE
     Dosage: 6 ML, 2X/DAY (BID)
     Dates: start: 2009
  4. KEPPRA [Suspect]
     Active Substance: LEVETIRACETAM
     Indication: SEIZURE
     Dosage: 10 MG, 2X/DAY (BID)
     Dates: start: 2008
  5. GENOTROPIN [Suspect]
     Active Substance: SOMATROPIN
     Indication: PRODUCT USED FOR UNKNOWN INDICATION
     Dosage: 12 MG CARTRIDE, ONCE DAILY (QD) INJECTION
     Dates: start: 200705, end: 2013
  6. DIASTAT [Concomitant]
     Active Substance: DIAZEPAM
     Indication: GENERALISED TONIC-CLONIC SEIZURE
     Dosage: UNK
     Route: 054
  7. VIMPAT [Concomitant]
     Active Substance: LACOSAMIDE
     Indication: SEIZURE
     Dosage: 10 ML, 2X/DAY (BID)
     Dates: start: 2014
  8. MARIJUANA [Concomitant]
     Active Substance: CANNABIS SATIVA SUBSP. INDICA TOP
     Indication: SEIZURE
     Dosage: UNK

REACTIONS (4)
  - Seizure [Recovering/Resolving]
  - Weight increased [Unknown]
  - Generalised tonic-clonic seizure [Unknown]
  - Vomiting [Recovered/Resolved]

NARRATIVE: CASE EVENT DATE: 2013
